FAERS Safety Report 9865575 (Version 1)
Quarter: 2014Q1

REPORT INFORMATION
  Report Type: Spontaneous
  Country: US (occurrence: US)
  Receive Date: 20140203
  Receipt Date: 20140203
  Transmission Date: 20141002
  Serious: No
  Sender: FDA-Public Use
  Company Number: US-ALLERGAN-1305509US

PATIENT
  Age: 64 Year
  Sex: Female

DRUGS (5)
  1. RESTASIS [Suspect]
     Indication: PRODUCT USED FOR UNKNOWN INDICATION
     Dosage: 2 GTT, BID
     Route: 047
  2. HYDROCODONE [Concomitant]
     Indication: SCOLIOSIS
     Dosage: UNK UNK, QID
  3. MIGRAINE MEDICATION NOS [Concomitant]
     Indication: MIGRAINE
     Dosage: UNK
     Route: 048
  4. LEVOTHYROXINE [Concomitant]
     Indication: HYPOTHYROIDISM
     Dosage: 88 ?G, QD
     Route: 048
  5. XANAX [Concomitant]
     Indication: AGORAPHOBIA
     Dosage: 0.5 MG, QID
     Route: 048

REACTIONS (1)
  - Ocular hyperaemia [Recovering/Resolving]
